FAERS Safety Report 5331108-4 (Version None)
Quarter: 2007Q2

REPORT INFORMATION
  Report Type: 
  Country: None (occurrence: None)
  Receive Date: 20070517
  Receipt Date: 20070517
  Transmission Date: 20071010
  Serious: Yes (Other)
  Sender: FDA-Public Use
  Company Number: None

PATIENT
  Age: 5 Year
  Sex: Female
  Weight: 24.9478 kg

DRUGS (1)
  1. HYDROGEN PEROXIDE SOLUTION [Suspect]

REACTIONS (5)
  - ACCIDENTAL EXPOSURE [None]
  - EYE INJURY [None]
  - EYE IRRITATION [None]
  - PHARMACEUTICAL PRODUCT COMPLAINT [None]
  - SCREAMING [None]
